FAERS Safety Report 7934003-7 (Version None)
Quarter: 2011Q4

REPORT INFORMATION
  Report Type: 
  Country: None (occurrence: None)
  Receive Date: 20111122
  Receipt Date: 20111111
  Transmission Date: 20120403
  Serious: Yes (Other)
  Sender: FDA-Public Use
  Company Number: CA-ELI_LILLY_AND_COMPANY-CA201111003805

PATIENT
  Sex: Male

DRUGS (13)
  1. CELEXA [Concomitant]
  2. ZYPREXA [Suspect]
     Dosage: 15 MG, EACH EVENING
  3. SEROQUEL [Concomitant]
  4. ZYPREXA [Suspect]
     Dosage: 20 MG, QD
     Dates: start: 20010603
  5. ZYPREXA [Suspect]
     Dosage: 10 MG, QD
  6. FLUOXETINE [Concomitant]
  7. BENZTROPINE MESYLATE [Concomitant]
  8. APO-METHOPRAZINE [Concomitant]
  9. ZYPREXA [Suspect]
     Dosage: 30 MG, QD
  10. ZYPREXA [Suspect]
     Dosage: 20 MG, EACH EVENING
  11. MEPRAZINE [Concomitant]
  12. CLONAZEPAM [Concomitant]
  13. ZYPREXA [Suspect]
     Dosage: 10 MG, EACH MORNING

REACTIONS (10)
  - BLINDNESS [None]
  - HEAD DISCOMFORT [None]
  - CEREBROVASCULAR ACCIDENT [None]
  - FALL [None]
  - HYPERGLYCAEMIA [None]
  - MOVEMENT DISORDER [None]
  - MYOCARDIAL INFARCTION [None]
  - WEIGHT INCREASED [None]
  - HYPOTENSION [None]
  - OVERDOSE [None]
